FAERS Safety Report 17051326 (Version 3)
Quarter: 2019Q4

REPORT INFORMATION
  Report Type: Report from Study
  Country: US (occurrence: US)
  Receive Date: 20191120
  Receipt Date: 20191230
  Transmission Date: 20200122
  Serious: Yes (Other)
  Sender: FDA-Public Use
  Company Number: US-EMD SERONO-9091858

PATIENT
  Age: 66 Year
  Sex: Female

DRUGS (3)
  1. REBIF [Suspect]
     Active Substance: INTERFERON BETA-1A
     Route: 058
     Dates: start: 201905, end: 2019
  2. REBIF [Suspect]
     Active Substance: INTERFERON BETA-1A
     Indication: PRODUCT USED FOR UNKNOWN INDICATION
     Route: 058
     Dates: start: 20110715
  3. REBIF [Suspect]
     Active Substance: INTERFERON BETA-1A
     Route: 058
     Dates: start: 2019

REACTIONS (17)
  - Hepatic steatosis [Recovered/Resolved]
  - Fractured coccyx [Recovered/Resolved]
  - Blood potassium decreased [Recovered/Resolved]
  - Poor quality sleep [Unknown]
  - Head injury [Recovered/Resolved]
  - Product dose omission [Unknown]
  - Cholecystitis infective [Recovered/Resolved]
  - Pyrexia [Recovered/Resolved]
  - Hearing aid user [Unknown]
  - Haematoma [Recovered/Resolved]
  - Diarrhoea [Recovered/Resolved]
  - Pain [Recovered/Resolved]
  - Memory impairment [Unknown]
  - Blood glucose increased [Unknown]
  - Fall [Recovered/Resolved]
  - Gait disturbance [Unknown]
  - Loss of consciousness [Recovered/Resolved]

NARRATIVE: CASE EVENT DATE: 2018
